FAERS Safety Report 10378118 (Version 1)
Quarter: 2014Q3

REPORT INFORMATION
  Report Type: Spontaneous
  Country: AU (occurrence: None)
  Receive Date: 20140807
  Receipt Date: 20140807
  Transmission Date: 20150326
  Serious: Yes (Hospitalization)
  Sender: FDA-Public Use
  Company Number: KAD201408-000871

PATIENT
  Age: 47 Year
  Sex: Male

DRUGS (6)
  1. ULTRAVIST (IOPROMIDE) (IOPROMIDE) [Concomitant]
  2. BMS 914143 (PEGINTERFERON LAMDA) [Suspect]
     Active Substance: PEGINTERFERON LAMBDA-1A
     Indication: HEPATITIS C
     Route: 058
     Dates: start: 20130312, end: 20130722
  3. PLACEBO [Suspect]
     Active Substance: UNSPECIFIED INGREDIENT
     Indication: CHRONIC HEPATITIS C
     Route: 048
     Dates: start: 20130312, end: 20130603
  4. SODIUM LACTATE. [Concomitant]
     Active Substance: SODIUM LACTATE
  5. LORATIDINE (LORATIDINE)(LORATIDINE) [Concomitant]
  6. RIBAVIRIN (RIBAVIRIN) [Suspect]
     Active Substance: RIBAVIRIN
     Indication: CHRONIC HEPATITIS C
     Route: 048
     Dates: start: 20130312, end: 20130728

REACTIONS (1)
  - Jaundice [None]

NARRATIVE: CASE EVENT DATE: 20130728
